FAERS Safety Report 14311898 (Version 1)
Quarter: 2017Q4

REPORT INFORMATION
  Report Type: Spontaneous
  Country: FR (occurrence: FR)
  Receive Date: 20171221
  Receipt Date: 20171221
  Transmission Date: 20180321
  Serious: Yes (Other)
  Sender: FDA-Public Use
  Company Number: FR-MERCK KGAA-2037518

PATIENT
  Sex: Female

DRUGS (1)
  1. NOVOTHYROX [Suspect]
     Active Substance: LEVOTHYROXINE SODIUM
     Indication: PRODUCT USED FOR UNKNOWN INDICATION

REACTIONS (7)
  - Dysgraphia [None]
  - Malaise [None]
  - Hyperthyroidism [None]
  - Myopia [Not Recovered/Not Resolved]
  - Anger [None]
  - Amnesia [None]
  - Eye inflammation [None]

NARRATIVE: CASE EVENT DATE: 2017
